FAERS Safety Report 6828525-X (Version None)
Quarter: 2010Q3

REPORT INFORMATION
  Report Type: 
  Country: None (occurrence: None)
  Receive Date: 20100709
  Receipt Date: 20070212
  Transmission Date: 20110219
  Serious: No
  Sender: FDA-Public Use
  Company Number: US-PFIZER INC-2007012973

PATIENT
  Sex: Female
  Weight: 58.06 kg

DRUGS (10)
  1. CHANTIX [Suspect]
     Indication: SMOKING CESSATION THERAPY
     Dates: start: 20070120, end: 20070101
  2. COPAXONE [Concomitant]
  3. BACLOFEN [Concomitant]
  4. LASIX [Concomitant]
  5. ATENOLOL [Concomitant]
  6. LEXAPRO [Concomitant]
  7. VICODIN [Concomitant]
  8. AMBIEN [Concomitant]
     Indication: SLEEP DISORDER
  9. KLONOPIN [Concomitant]
  10. RESTORIL [Concomitant]

REACTIONS (2)
  - INCORRECT DOSE ADMINISTERED [None]
  - NAUSEA [None]
